FAERS Safety Report 19189829 (Version 1)
Quarter: 2021Q2

REPORT INFORMATION
  Report Type: Report from Study
  Country: US (occurrence: US)
  Receive Date: 20210428
  Receipt Date: 20210428
  Transmission Date: 20210717
  Serious: Yes (Hospitalization)
  Sender: FDA-Public Use
  Company Number: US-HRARD-2021000300

PATIENT
  Age: 39 Year
  Sex: Male

DRUGS (2)
  1. LYSODREN [Suspect]
     Active Substance: MITOTANE
     Route: 048
     Dates: end: 202103
  2. LYSODREN [Suspect]
     Active Substance: MITOTANE
     Dosage: 04 TABLETS BID
     Route: 048
     Dates: start: 20210320

REACTIONS (1)
  - Infection [Recovered/Resolved]

NARRATIVE: CASE EVENT DATE: 20210304
